FAERS Safety Report 5832315-4 (Version None)
Quarter: 2008Q3

REPORT INFORMATION
  Report Type: 
  Country: None (occurrence: None)
  Receive Date: 20080804
  Receipt Date: 20080728
  Transmission Date: 20090109
  Serious: Yes (Other)
  Sender: FDA-Public Use
  Company Number: B0522961A

PATIENT
  Age: 1 Year
  Sex: Female
  Weight: 9 kg

DRUGS (6)
  1. CLAVAMOX [Suspect]
     Indication: OTITIS MEDIA ACUTE
     Dosage: .7G TWICE PER DAY
     Route: 048
     Dates: start: 20080519, end: 20080526
  2. HOKUNALIN [Concomitant]
     Indication: COUGH
     Dosage: .5MG PER DAY
     Route: 062
     Dates: start: 20080422, end: 20080528
  3. ASPIRIN [Concomitant]
     Route: 065
  4. ALIMEZINE [Concomitant]
     Dosage: 3ML PER DAY
     Route: 048
     Dates: start: 20080422, end: 20080526
  5. MUCODYNE [Concomitant]
     Dosage: 3.99ML PER DAY
     Route: 048
     Dates: start: 20080422, end: 20080526
  6. ASVERIN [Concomitant]
     Indication: COUGH
     Dosage: 3ML PER DAY
     Route: 048
     Dates: start: 20080422, end: 20080526

REACTIONS (4)
  - ANOREXIA [None]
  - DRUG ERUPTION [None]
  - PYREXIA [None]
  - RASH GENERALISED [None]
